FAERS Safety Report 5738957-9 (Version None)
Quarter: 2008Q2

REPORT INFORMATION
  Report Type: 
  Country: None (occurrence: None)
  Receive Date: 20080515
  Receipt Date: 20080508
  Transmission Date: 20081010
  Serious: Yes (Other)
  Sender: FDA-Public Use
  Company Number: US-KINGPHARMUSA00001-K200800540

PATIENT

DRUGS (1)
  1. EPIPEN [Suspect]
     Dosage: .3 MG, SINGLE
     Dates: start: 20080504, end: 20080504

REACTIONS (4)
  - ACCIDENTAL EXPOSURE [None]
  - INJECTION SITE PALLOR [None]
  - POOR PERIPHERAL CIRCULATION [None]
  - SKELETAL INJURY [None]
